FAERS Safety Report 6656566-4 (Version None)
Quarter: 2010Q1

REPORT INFORMATION
  Report Type: 
  Country: None (occurrence: None)
  Receive Date: 20100329
  Receipt Date: 20100308
  Transmission Date: 20100710
  Serious: Yes (Other)
  Sender: FDA-Public Use
  Company Number: CHPA2010GB04637

PATIENT
  Sex: Female

DRUGS (3)
  1. NICOTINELL GUM (NCH) [Suspect]
     Dosage: 2 DF, ONCE/SINGLE
     Route: 002
  2. NICOTINELL GUM (NCH) [Suspect]
     Dosage: 1 DF, ONCE/SINGLE
     Route: 002
  3. NICOTINE (NCH) [Suspect]
     Dosage: UNK, UNK
     Route: 062

REACTIONS (9)
  - ABDOMINAL PAIN UPPER [None]
  - HEADACHE [None]
  - MALAISE [None]
  - MOBILITY DECREASED [None]
  - OVERDOSE [None]
  - PALPITATIONS [None]
  - PRURITUS [None]
  - SYNCOPE [None]
  - TREATMENT NONCOMPLIANCE [None]
